FAERS Safety Report 15366698 (Version 1)
Quarter: 2018Q3

REPORT INFORMATION
  Report Type: Spontaneous
  Country: US (occurrence: US)
  Receive Date: 20180902
  Receipt Date: 20180902
  Transmission Date: 20181010
  Serious: Yes (Disabling, Other)
  Sender: FDA-Public Use
  Company Number: None

PATIENT
  Age: 55 Year
  Sex: Female
  Weight: 66.6 kg

DRUGS (8)
  1. CEFEPIME [Concomitant]
     Active Substance: CEFEPIME HYDROCHLORIDE
  2. CVS NASAL MIST [Suspect]
     Active Substance: SODIUM CHLORIDE
     Indication: POSTOPERATIVE CARE
     Route: 055
     Dates: start: 20171215, end: 20180729
  3. SYNTHROID [Concomitant]
     Active Substance: LEVOTHYROXINE SODIUM
  4. FORTAZ [Concomitant]
     Active Substance: CEFTAZIDIME SODIUM
  5. CVS NASAL MIST [Suspect]
     Active Substance: SODIUM CHLORIDE
     Indication: SINUS OPERATION
     Route: 055
     Dates: start: 20171215, end: 20180729
  6. CYTOMEL [Concomitant]
     Active Substance: LIOTHYRONINE SODIUM
  7. TRAMADOL. [Concomitant]
     Active Substance: TRAMADOL
  8. PEPCID [Concomitant]
     Active Substance: FAMOTIDINE

REACTIONS (18)
  - Major depression [None]
  - Product use issue [None]
  - Staphylococcus test positive [None]
  - Loss of employment [None]
  - Dizziness [None]
  - Weight decreased [None]
  - Gastrooesophageal reflux disease [None]
  - Secretion discharge [None]
  - Pseudomonas test positive [None]
  - Fatigue [None]
  - Vomiting [None]
  - Sinus pain [None]
  - Diarrhoea [None]
  - Nausea [None]
  - Tinnitus [None]
  - Immune system disorder [None]
  - Malaise [None]
  - Asthenia [None]

NARRATIVE: CASE EVENT DATE: 20180104
